FAERS Safety Report 5135108-9 (Version None)
Quarter: 2006Q4

REPORT INFORMATION
  Report Type: 
  Country: None (occurrence: None)
  Receive Date: 20060831
  Receipt Date: 20060523
  Transmission Date: 20070319
  Serious: No
  Sender: FDA-Public Use
  Company Number: 2006-BP-05869BP

PATIENT
  Sex: Female

DRUGS (5)
  1. SPIRIVA [Suspect]
     Indication: EMPHYSEMA
     Dosage: SEE IMAGE
     Dates: start: 20060509, end: 20060509
  2. SPIRIVA [Suspect]
     Indication: EMPHYSEMA
     Dosage: SEE IMAGE
     Dates: start: 20060517, end: 20060517
  3. LIPITOR [Concomitant]
  4. PREVACID [Concomitant]
  5. ALBUTEROL [Concomitant]

REACTIONS (2)
  - HEART RATE INCREASED [None]
  - NERVOUSNESS [None]
